FAERS Safety Report 10744189 (Version 2)
Quarter: 2015Q1

REPORT INFORMATION
  Report Type: Spontaneous
  Country: US (occurrence: None)
  Receive Date: 20150126
  Receipt Date: 20150209
  Transmission Date: 20150721
  Serious: No
  Sender: FDA-Public Use
  Company Number: 2015-00006

PATIENT
  Age: 71 Year
  Sex: Female
  Weight: 53.98 kg

DRUGS (4)
  1. AMOTRIPTOLINE [Concomitant]
  2. DONATAL [Concomitant]
  3. ZICAM COLD REMEDY RAPIDMELTS [Suspect]
     Active Substance: ZINC ACETATE ANHYDROUS\ZINC GLUCONATE
     Indication: NASOPHARYNGITIS
     Dosage: EVERY 3-4 HOURS
     Route: 048
     Dates: start: 20150116, end: 20150117
  4. ZICAM COLD REMEDY [Suspect]
     Active Substance: ZINC ACETATE\ZINC GLUCONATE
     Indication: NASOPHARYNGITIS
     Dosage: EVERY 3-4 HOURS
     Route: 048
     Dates: start: 20150117, end: 20150120

REACTIONS (2)
  - Ageusia [None]
  - Dry mouth [None]

NARRATIVE: CASE EVENT DATE: 20150117
